FAERS Safety Report 23808975 (Version 2)
Quarter: 2024Q2

REPORT INFORMATION
  Report Type: Spontaneous
  Country: US (occurrence: US)
  Receive Date: 20240502
  Receipt Date: 20240610
  Transmission Date: 20240716
  Serious: No
  Sender: FDA-Public Use
  Company Number: US-AMX-007761

PATIENT
  Age: 35 Year
  Sex: Male

DRUGS (8)
  1. RELYVRIO [Suspect]
     Active Substance: SODIUM PHENYLBUTYRATE\TAURURSODIOL
     Indication: Amyotrophic lateral sclerosis
     Dosage: DOSE REDUCE TO 1 SACHET ONCE DAILY.
     Route: 048
     Dates: start: 2023
  2. RELYVRIO [Suspect]
     Active Substance: SODIUM PHENYLBUTYRATE\TAURURSODIOL
     Indication: Amyotrophic lateral sclerosis
     Dosage: 1 SACHET ONCE DAILY FOR 3 WEEKS THEN 1 SACHET TWICE DAILY
     Route: 048
     Dates: start: 2023
  3. VITAMIN D3 [Concomitant]
     Active Substance: CHOLECALCIFEROL
     Indication: Product used for unknown indication
     Dosage: DOSAGE: 10000 U ONCE EVERY MORNING
  4. Vitamine E mixed [Concomitant]
     Indication: Product used for unknown indication
     Dosage: DOSAGE: 400 U ONCE EVERY MORNING
     Route: 065
  5. Cyanocobalamin (vit B-12) [Concomitant]
     Indication: Product used for unknown indication
     Dosage: ONCE EVERY MORNING
     Route: 065
  6. BETA CAROTENE [Concomitant]
     Active Substance: BETA CAROTENE
     Indication: Product used for unknown indication
     Dosage: DOSAGE: 25000 U ONCE EVERY MORNING
     Route: 065
  7. RILUZOLE [Concomitant]
     Active Substance: RILUZOLE
     Indication: Product used for unknown indication
     Dosage: 50 MG TWICE A DAY.
     Route: 065
  8. RADICAVA ORS [Concomitant]
     Active Substance: EDARAVONE
     Indication: Product used for unknown indication
     Dosage: 105MG/5ML; TAKE 5ML 10 DAYS OUT OF A 14 DAY PERIOD, FOLLOWED BY A 14 DAY DRUG FREE PERIOD.

REACTIONS (4)
  - Abdominal pain upper [Unknown]
  - Abdominal discomfort [Unknown]
  - Nausea [Unknown]
  - Product dose omission issue [Unknown]
